FAERS Safety Report 7715078-7 (Version None)
Quarter: 2011Q3

REPORT INFORMATION
  Report Type: 
  Country: None (occurrence: None)
  Receive Date: 20110829
  Receipt Date: 20110815
  Transmission Date: 20111222
  Serious: Yes (Other)
  Sender: FDA-Public Use
  Company Number: PHHY2011NL73334

PATIENT
  Sex: Male

DRUGS (3)
  1. ACETAMINOPHEN [Concomitant]
  2. IBRUPROFEN [Concomitant]
  3. SANDOSTATIN LAR [Suspect]
     Indication: ACROMEGALY
     Dosage: 20 MG, UNK
     Route: 030
     Dates: start: 20110622

REACTIONS (3)
  - SWELLING [None]
  - WOUND [None]
  - OCULAR HYPERAEMIA [None]
